FAERS Safety Report 17038519 (Version 2)
Quarter: 2019Q4

REPORT INFORMATION
  Report Type: Spontaneous
  Country: IT (occurrence: IT)
  Receive Date: 20191115
  Receipt Date: 20191118
  Transmission Date: 20200122
  Serious: Yes (Death)
  Sender: FDA-Public Use
  Company Number: IT-JNJFOC-20191113554

PATIENT
  Age: 68 Year
  Sex: Male

DRUGS (2)
  1. IMBRUVICA [Suspect]
     Active Substance: IBRUTINIB
     Indication: PRODUCT USED FOR UNKNOWN INDICATION
     Route: 048
     Dates: start: 20191022, end: 20191030
  2. INHIXA [Concomitant]
     Active Substance: ENOXAPARIN SODIUM
     Dosage: 10,000 IU (100 MG)/1 ML

REACTIONS (1)
  - Cerebral haemorrhage [Fatal]
